FAERS Safety Report 6042523-8 (Version None)
Quarter: 2009Q1

REPORT INFORMATION
  Report Type: 
  Country: None (occurrence: None)
  Receive Date: 20090117
  Receipt Date: 20090108
  Transmission Date: 20090719
  Serious: Yes (Hospitalization)
  Sender: FDA-Public Use
  Company Number: CA-JNJFOC-20090101615

PATIENT
  Sex: Male
  Weight: 68 kg

DRUGS (11)
  1. REMICADE [Suspect]
     Route: 042
  2. REMICADE [Suspect]
     Route: 042
  3. REMICADE [Suspect]
     Route: 042
  4. REMICADE [Suspect]
     Route: 042
  5. REMICADE [Suspect]
     Route: 042
  6. REMICADE [Suspect]
     Route: 042
  7. REMICADE [Suspect]
     Route: 042
  8. REMICADE [Suspect]
     Indication: COLITIS ULCERATIVE
     Route: 042
  9. BENADRYL [Concomitant]
     Indication: PREMEDICATION
     Route: 048
  10. HYDROCORTISONE [Concomitant]
     Indication: PREMEDICATION
     Route: 042
  11. PREDNISONE [Concomitant]

REACTIONS (4)
  - DIARRHOEA [None]
  - FATIGUE [None]
  - RECTAL HAEMORRHAGE [None]
  - WEIGHT DECREASED [None]
